FAERS Safety Report 8000116-7 (Version None)
Quarter: 2011Q4

REPORT INFORMATION
  Report Type: 
  Country: None (occurrence: None)
  Receive Date: 20111222
  Receipt Date: 20111209
  Transmission Date: 20120403
  Serious: Yes (Other)
  Sender: FDA-Public Use
  Company Number: US-ELI_LILLY_AND_COMPANY-US201006002487

PATIENT
  Sex: Female

DRUGS (4)
  1. FORTEO [Suspect]
     Indication: OSTEOPOROSIS
     Dosage: 20 UG, DAILY (1/D)
     Route: 065
     Dates: start: 20100501
  2. ANALGESICS [Concomitant]
     Indication: PAIN
  3. FORTEO [Suspect]
     Dosage: 20 UG, QD
     Route: 065
  4. FORTEO [Suspect]
     Dosage: 20 UG, QD
     Route: 065

REACTIONS (15)
  - JOINT DISLOCATION [None]
  - JOINT INJURY [None]
  - SCAR [None]
  - INCISION SITE PAIN [None]
  - LIGAMENT LAXITY [None]
  - ARTHRALGIA [None]
  - DIZZINESS [None]
  - JOINT SWELLING [None]
  - MOVEMENT DISORDER [None]
  - FALL [None]
  - NASOPHARYNGITIS [None]
  - BURSA DISORDER [None]
  - VERTIGO [None]
  - PAIN [None]
  - MALAISE [None]
